FAERS Safety Report 8548273-8 (Version None)
Quarter: 2012Q3

REPORT INFORMATION
  Report Type: 
  Country: None (occurrence: None)
  Receive Date: 20120730
  Receipt Date: 20120718
  Transmission Date: 20120928
  Serious: Yes (Hospitalization, Disabling)
  Sender: FDA-Public Use
  Company Number: US-JNJFOC-20120709738

PATIENT
  Sex: Male
  Weight: 77.11 kg

DRUGS (1)
  1. ZYTIGA [Suspect]
     Indication: PROSTATE CANCER METASTATIC
     Route: 048
     Dates: start: 20120301, end: 20120501

REACTIONS (4)
  - BLOOD POTASSIUM DECREASED [None]
  - DISABILITY [None]
  - SYNCOPE [None]
  - ABASIA [None]
